FAERS Safety Report 9188610 (Version 1)
Quarter: 2013Q1

REPORT INFORMATION
  Report Type: Report from Study
  Country: CN (occurrence: CN)
  Receive Date: 20130325
  Receipt Date: 20130325
  Transmission Date: 20140127
  Serious: Yes (Death)
  Sender: FDA-Public Use
  Company Number: CN-ROCHE-1206063

PATIENT
  Age: 40 Year
  Sex: Male
  Weight: 79 kg

DRUGS (1)
  1. AVASTIN [Suspect]
     Indication: RECTAL CANCER METASTATIC
     Route: 041
     Dates: start: 201207

REACTIONS (1)
  - Hydrothorax [Fatal]
